FAERS Safety Report 8947520 (Version 2)
Quarter: 2013Q2

REPORT INFORMATION
  Report Type: Report from Study
  Country: DE (occurrence: DE)
  Receive Date: 20121205
  Receipt Date: 20130510
  Transmission Date: 20140414
  Serious: Yes (Hospitalization, Other)
  Sender: FDA-Public Use
  Company Number: DE-BAYER-2012-120611

PATIENT
  Age: 74 Year
  Sex: Male
  Weight: 80 kg

DRUGS (5)
  1. SORAFENIB (RAF KINASE INHIBITOR) [Suspect]
     Indication: HEPATOCELLULAR CARCINOMA
     Dosage: 800MG DAILY
     Route: 048
     Dates: start: 20121003, end: 20121008
  2. PRIMOVIST [Suspect]
     Dosage: UNK
     Route: 042
     Dates: start: 20110811, end: 20120821
  3. YTTRIUM (90 Y) [Suspect]
     Indication: HEPATOCELLULAR CARCINOMA
     Dosage: UNK
     Dates: start: 20110907, end: 20110923
  4. SPIRONOLACTON [Concomitant]
     Indication: ASCITES
     Dosage: 50MG DAILY
     Route: 048
  5. PANTOZOL [Concomitant]
     Indication: GASTRITIS EROSIVE
     Dosage: 40 MG DAILY
     Route: 048

REACTIONS (8)
  - Hypoglycaemia [Recovered/Resolved]
  - Dyspnoea [Recovered/Resolved]
  - Ascites [Recovered/Resolved]
  - Oesophageal varices haemorrhage [None]
  - Diarrhoea [None]
  - Nausea [None]
  - Vomiting [None]
  - Oedema [None]
